FAERS Safety Report 12497298 (Version 2)
Quarter: 2016Q3

REPORT INFORMATION
  Report Type: Spontaneous
  Country: JP (occurrence: JP)
  Receive Date: 20160624
  Receipt Date: 20160705
  Transmission Date: 20161109
  Serious: Yes (Other)
  Sender: FDA-Public Use
  Company Number: JP-PFIZER INC-2016186438

PATIENT
  Age: 93 Year
  Sex: Male
  Weight: 42 kg

DRUGS (1)
  1. CEFTRIAXONE SODIUM PFIZER [Suspect]
     Active Substance: CEFTRIAXONE SODIUM
     Indication: PNEUMONIA
     Dosage: 2 G, DAILY

REACTIONS (2)
  - Seizure [Recovered/Resolved]
  - Cholelithiasis [Recovered/Resolved]
